FAERS Safety Report 5027493-3 (Version None)
Quarter: 2006Q2

REPORT INFORMATION
  Report Type: 
  Country: None (occurrence: None)
  Receive Date: 20060501
  Receipt Date: 20051209
  Transmission Date: 20061013
  Serious: No
  Sender: FDA-Public Use
  Company Number: 2005PV005696

PATIENT
  Age: 53 Year
  Sex: Female
  Weight: 119.7496 kg

DRUGS (6)
  1. SYMLIN [Suspect]
     Indication: DIABETES MELLITUS NON-INSULIN-DEPENDENT
     Dosage: 15 MCG;QD;SC
     Route: 058
     Dates: start: 20051206, end: 20051208
  2. DIOVAN [Concomitant]
  3. PRAVACHOL [Concomitant]
  4. CELEXA [Concomitant]
  5. HUMALIN 70/30 [Concomitant]
  6. Z PACK [Concomitant]

REACTIONS (3)
  - DECREASED APPETITE [None]
  - HAEMATOCHEZIA [None]
  - NAUSEA [None]
